FAERS Safety Report 7458236-1 (Version None)
Quarter: 2011Q2

REPORT INFORMATION
  Report Type: 
  Country: None (occurrence: None)
  Receive Date: 20110504
  Receipt Date: 20110427
  Transmission Date: 20111010
  Serious: Yes (Hospitalization)
  Sender: FDA-Public Use
  Company Number: US-MERCK-1011USA02600

PATIENT
  Age: 50 Year
  Sex: Female

DRUGS (1)
  1. FOSAMAX [Suspect]
     Indication: OSTEOPENIA
     Route: 048
     Dates: start: 20010901, end: 20050401

REACTIONS (11)
  - ABDOMINAL PAIN UPPER [None]
  - EXOSTOSIS [None]
  - DIABETES MELLITUS [None]
  - OSTEONECROSIS OF JAW [None]
  - ARRHYTHMIA [None]
  - TOOTH FRACTURE [None]
  - GALLBLADDER DISORDER [None]
  - ASTHMA [None]
  - OESOPHAGEAL SPASM [None]
  - FUNGAL INFECTION [None]
  - HEAD INJURY [None]
